FAERS Safety Report 8417937-9 (Version None)
Quarter: 2012Q2

REPORT INFORMATION
  Report Type: 
  Country: None (occurrence: None)
  Receive Date: 20120601
  Receipt Date: 20120601
  Transmission Date: 20120825
  Serious: Yes (Life-Threatening, Hospitalization)
  Sender: FDA-Public Use
  Company Number: None

PATIENT

DRUGS (1)
  1. CAMRESE [Suspect]
     Indication: CONTRACEPTION
     Dosage: TID ORAL
     Route: 048
     Dates: start: 20120101, end: 20120401

REACTIONS (1)
  - DEEP VEIN THROMBOSIS [None]
